FAERS Safety Report 25988156 (Version 3)
Quarter: 2025Q4

REPORT INFORMATION
  Report Type: Spontaneous
  Country: US (occurrence: US)
  Receive Date: 20251103
  Receipt Date: 20251127
  Transmission Date: 20260117
  Serious: Yes (Other)
  Sender: ALEXION PHARMACEUTICALS
  Company Number: US-AstraZeneca-CH-00980533A

PATIENT
  Sex: Female
  Weight: 47.619 kg

DRUGS (1)
  1. WAINUA [Suspect]
     Active Substance: EPLONTERSEN
     Dosage: UNK
     Route: 065

REACTIONS (25)
  - Neuropathy peripheral [Unknown]
  - Disease progression [Unknown]
  - Paralysis [Unknown]
  - Fatigue [Unknown]
  - Vitamin A decreased [Unknown]
  - Pain [Unknown]
  - Feeling abnormal [Unknown]
  - Neuralgia [Unknown]
  - Blood pressure decreased [Unknown]
  - Dizziness [Unknown]
  - Cardiac disorder [Unknown]
  - Gastrointestinal disorder [Unknown]
  - Acquired ATTR amyloidosis [Unknown]
  - Dyspepsia [Unknown]
  - Blood pressure decreased [Unknown]
  - Tuberculin test [Unknown]
  - Malaise [Unknown]
  - Sensory disturbance [Unknown]
  - Limb discomfort [Unknown]
  - Ligament sprain [Unknown]
  - Fall [Unknown]
  - Irritable bowel syndrome [Unknown]
  - Dizziness [Unknown]
  - Nocturia [Unknown]
  - Dry mouth [Unknown]
